FAERS Safety Report 15770759 (Version 1)
Quarter: 2018Q4

REPORT INFORMATION
  Report Type: Spontaneous
  Country: DE (occurrence: DE)
  Receive Date: 20181228
  Receipt Date: 20181228
  Transmission Date: 20190205
  Serious: Yes (Other)
  Sender: FDA-Public Use
  Company Number: PHHY2018DE196736

PATIENT
  Age: 78 Year
  Sex: Male

DRUGS (2)
  1. OMEPRAZOL 1A PHARMA [Suspect]
     Active Substance: OMEPRAZOLE
     Indication: GASTROOESOPHAGEAL REFLUX DISEASE
     Dosage: 20 MG, BID (SIX MONTHS AGO)
     Route: 065
  2. OMEPRAZOL 1A PHARMA [Suspect]
     Active Substance: OMEPRAZOLE
     Dosage: 10 MG, BID (SINCE 10 DAYS AGO)
     Route: 065

REACTIONS (2)
  - Cough [Unknown]
  - Epiglottitis [Unknown]
